FAERS Safety Report 5719369-0 (Version None)
Quarter: 2008Q2

REPORT INFORMATION
  Report Type: 
  Country: None (occurrence: None)
  Receive Date: 20080428
  Receipt Date: 20080422
  Transmission Date: 20081010
  Serious: No
  Sender: FDA-Public Use
  Company Number: A0723519A

PATIENT
  Age: 49 Year
  Sex: Female

DRUGS (1)
  1. ALLI [Suspect]
     Indication: DRUG USE FOR UNKNOWN INDICATION
     Dates: start: 20080414, end: 20080416

REACTIONS (3)
  - ABDOMINAL PAIN UPPER [None]
  - DISCOMFORT [None]
  - STOMACH DISCOMFORT [None]
